FAERS Safety Report 11384597 (Version 1)
Quarter: 2015Q3

REPORT INFORMATION
  Report Type: Spontaneous
  Country: US (occurrence: US)
  Receive Date: 20150811
  Receipt Date: 20150811
  Transmission Date: 20151125
  Serious: No
  Sender: FDA-Public Use
  Company Number: US-ELI_LILLY_AND_COMPANY-US201104004965

PATIENT
  Age: 46 Year
  Sex: Male
  Weight: 104.31 kg

DRUGS (4)
  1. MUSE [Concomitant]
     Active Substance: ALPROSTADIL
     Dosage: 10000 UG, PRN
  2. CIALIS [Suspect]
     Active Substance: TADALAFIL
     Indication: ERECTILE DYSFUNCTION
     Dosage: 5 MG, QD
  3. CIALIS [Suspect]
     Active Substance: TADALAFIL
     Dosage: 10 MG, UNK
     Dates: start: 20110414
  4. CLOMID [Concomitant]
     Active Substance: CLOMIPHENE CITRATE
     Dosage: 25 MG, QD

REACTIONS (2)
  - Wrong technique in product usage process [Not Recovered/Not Resolved]
  - Drug ineffective [Recovered/Resolved]

NARRATIVE: CASE EVENT DATE: 20110414
